FAERS Safety Report 20506226 (Version 8)
Quarter: 2025Q3

REPORT INFORMATION
  Report Type: Spontaneous
  Country: US (occurrence: US)
  Receive Date: 20220223
  Receipt Date: 20250709
  Transmission Date: 20251020
  Serious: No
  Sender: GLAXOSMITHKLINE
  Company Number: US-GSKCCFUS-Case-01301832_AE-75845

PATIENT
  Age: 66 Year
  Sex: Female

DRUGS (8)
  1. NUCALA [Suspect]
     Active Substance: MEPOLIZUMAB
     Indication: Asthma
  2. NUCALA [Suspect]
     Active Substance: MEPOLIZUMAB
     Indication: Asthma
  3. NUCALA [Suspect]
     Active Substance: MEPOLIZUMAB
  4. NUCALA [Suspect]
     Active Substance: MEPOLIZUMAB
     Indication: Asthma
     Dosage: 100 MG, Q4W
  5. NUCALA [Suspect]
     Active Substance: MEPOLIZUMAB
  6. NUCALA [Suspect]
     Active Substance: MEPOLIZUMAB
  7. ELAVIL [Concomitant]
     Active Substance: AMITRIPTYLINE HYDROCHLORIDE
     Indication: Bladder spasm
  8. INSULIN NOS [Concomitant]
     Active Substance: INSULIN NOS
     Indication: Diabetes mellitus

REACTIONS (22)
  - Nausea [Recovered/Resolved]
  - Diarrhoea [Recovered/Resolved]
  - Feeding disorder [Recovered/Resolved]
  - Abdominal pain upper [Recovering/Resolving]
  - Dyspepsia [Recovered/Resolved]
  - Illness [Recovered/Resolved]
  - Arthralgia [Unknown]
  - Back pain [Not Recovered/Not Resolved]
  - Condition aggravated [Unknown]
  - Dizziness [Recovered/Resolved]
  - Vertigo [Recovered/Resolved]
  - Bladder disorder [Unknown]
  - Bladder pain [Unknown]
  - Pain [Unknown]
  - Asthma [Recovered/Resolved]
  - Dyspnoea [Unknown]
  - Injection site pain [Unknown]
  - Fatigue [Unknown]
  - Bladder spasm [Unknown]
  - Weight decreased [Unknown]
  - Headache [Unknown]
  - Therapeutic response unexpected [Unknown]

NARRATIVE: CASE EVENT DATE: 20220217
